FAERS Safety Report 21520483 (Version 1)
Quarter: 2022Q4

REPORT INFORMATION
  Report Type: Spontaneous
  Country: US (occurrence: None)
  Receive Date: 20221027
  Receipt Date: 20221027
  Transmission Date: 20230112
  Serious: Yes (Life-Threatening, Hospitalization, Other)
  Sender: FDA-Public Use
  Company Number: None

PATIENT
  Age: 55 Year
  Sex: Female
  Weight: 98 kg

DRUGS (2)
  1. MAGNESIUM SULFATE [Suspect]
     Active Substance: MAGNESIUM SULFATE
     Indication: Magnesium deficiency
     Dosage: FREQUENCY : ONCE;?OTHER ROUTE : IV;?
     Route: 050
     Dates: start: 20221004, end: 20221004
  2. VANCOMYCIN HYDROCHLORIDE [Suspect]
     Active Substance: VANCOMYCIN HYDROCHLORIDE
     Indication: Pneumonia
     Dosage: FREQUENCY : ONCE;?OTHER ROUTE : IV;?
     Route: 050
     Dates: start: 20221004, end: 20221004

REACTIONS (6)
  - Hot flush [None]
  - Dyspnoea [None]
  - Respiratory depression [None]
  - Rash [None]
  - Urticaria [None]
  - Pruritus [None]

NARRATIVE: CASE EVENT DATE: 20221004
